FAERS Safety Report 6454213-8 (Version None)
Quarter: 2009Q4

REPORT INFORMATION
  Report Type: 
  Country: None (occurrence: None)
  Receive Date: 20091117
  Receipt Date: 20091103
  Transmission Date: 20100525
  Serious: Yes (Hospitalization)
  Sender: FDA-Public Use
  Company Number: 20090508

PATIENT
  Age: 17 Year
  Sex: Male

DRUGS (5)
  1. DEXAMETHASONE SODIUM PHOSPHATE [Suspect]
     Indication: ACUTE LYMPHOCYTIC LEUKAEMIA
  2. DOXORUBICIN HCL [Concomitant]
  3. RANITIDINE [Concomitant]
  4. VINCRISTINE [Concomitant]
  5. PEGASPARGASE [Concomitant]

REACTIONS (13)
  - ASCITES [None]
  - CONSTIPATION [None]
  - DIALYSIS [None]
  - DIVERTICULAR PERFORATION [None]
  - ESCHERICHIA INFECTION [None]
  - GASTRITIS [None]
  - HAEMATEMESIS [None]
  - MUCOSAL INFLAMMATION [None]
  - NEUTROPENIA [None]
  - PEPTIC ULCER [None]
  - PERITONITIS BACTERIAL [None]
  - PNEUMOPERITONEUM [None]
  - SEPSIS [None]
